FAERS Safety Report 10186034 (Version 1)
Quarter: 2014Q2

REPORT INFORMATION
  Report Type: Spontaneous
  Country: US (occurrence: None)
  Receive Date: 20140520
  Receipt Date: 20140520
  Transmission Date: 20141212
  Serious: Yes (Other)
  Sender: FDA-Public Use
  Company Number: None

PATIENT
  Age: 38 Year
  Sex: Female

DRUGS (1)
  1. COPAXONE [Suspect]
     Indication: MULTIPLE SCLEROSIS
     Route: 058
     Dates: start: 20090313

REACTIONS (6)
  - Chest pain [None]
  - Loss of consciousness [None]
  - Convulsion [None]
  - Heart rate increased [None]
  - Dyspnoea [None]
  - Immediate post-injection reaction [None]
